FAERS Safety Report 4792825-8 (Version None)
Quarter: 2005Q4

REPORT INFORMATION
  Report Type: 
  Country: None (occurrence: None)
  Receive Date: 20051010
  Receipt Date: 20050914
  Transmission Date: 20060501
  Serious: Yes (Death)
  Sender: FDA-Public Use
  Company Number: PHBS2005JP13583

PATIENT
  Age: 21 Year
  Sex: Male

DRUGS (1)
  1. GLEEVEC [Suspect]
     Indication: CHRONIC MYELOID LEUKAEMIA
     Route: 048

REACTIONS (3)
  - BRONCHITIS CHRONIC [None]
  - CRYPTOGENIC ORGANIZING PNEUMONIA [None]
  - GRAFT VERSUS HOST DISEASE [None]
